FAERS Safety Report 8985133 (Version 2)
Quarter: 2013Q1

REPORT INFORMATION
  Report Type: Spontaneous
  Country: US (occurrence: US)
  Receive Date: 20121226
  Receipt Date: 20130215
  Transmission Date: 20140127
  Serious: No
  Sender: FDA-Public Use
  Company Number: US-BAYER-2012-134091

PATIENT
  Age: 25 Year
  Sex: Female
  Weight: 43.99 kg

DRUGS (2)
  1. MIRENA [Suspect]
     Indication: CONTRACEPTION
     Dosage: 20 MCG/24HR, CONT
     Route: 015
     Dates: start: 20121217, end: 20121217
  2. INFLUENZA VIRUS VACCINE [Concomitant]
     Indication: ANTIVIRAL PROPHYLAXIS
     Dosage: UNK UNK, ONCE
     Route: 030

REACTIONS (1)
  - Device expulsion [None]
